FAERS Safety Report 25867333 (Version 1)
Quarter: 2025Q4

REPORT INFORMATION
  Report Type: Spontaneous
  Country: US (occurrence: US)
  Receive Date: 20251001
  Receipt Date: 20251001
  Transmission Date: 20260117
  Serious: No
  Sender: GLAXOSMITHKLINE
  Company Number: US-GSK-US2025AMR107455

PATIENT
  Sex: Female

DRUGS (1)
  1. BENLYSTA [Suspect]
     Active Substance: BELIMUMAB
     Indication: Lupus nephritis
     Dosage: 200 MG, WE

REACTIONS (5)
  - Illness [Unknown]
  - Confusional state [Unknown]
  - Memory impairment [Unknown]
  - Pruritus [Recovered/Resolved]
  - Product dose omission issue [Unknown]
